FAERS Safety Report 25590293 (Version 6)
Quarter: 2025Q3

REPORT INFORMATION
  Report Type: Spontaneous
  Country: EU (occurrence: EU)
  Receive Date: 20250722
  Receipt Date: 20250919
  Transmission Date: 20251021
  Serious: Yes (Hospitalization, Other)
  Sender: MYLAN
  Company Number: EU-MYLANLABS-2025M1060857

PATIENT
  Age: 55 Year
  Sex: Female
  Weight: 73.8 kg

DRUGS (58)
  1. CLOZARIL [Suspect]
     Active Substance: CLOZAPINE
     Indication: Schizophrenia
     Dosage: BID (100 MILLIGRAM IN MORNING AND 400 MILLIGRAM AT NIGHT)
     Dates: start: 20060714, end: 20250706
  2. CLOZARIL [Suspect]
     Active Substance: CLOZAPINE
     Dosage: BID (100 MILLIGRAM IN MORNING AND 1200 MILLIGRAM AT NIGHT))
     Dates: start: 20250702
  3. CLOZARIL [Suspect]
     Active Substance: CLOZAPINE
     Dosage: 100 MILLIGRAM, AM
     Dates: start: 20250703
  4. CLOZARIL [Suspect]
     Active Substance: CLOZAPINE
     Dosage: 100 MILLIGRAM, AM
     Dates: start: 20250704
  5. CLOZARIL [Suspect]
     Active Substance: CLOZAPINE
     Dosage: BID (100 MILLIGRAM IN MORNING AND 400 MILLIGRAM AT NIGHT)
     Dates: start: 20250724
  6. CLOZARIL [Suspect]
     Active Substance: CLOZAPINE
     Dosage: BID (100 MILLIGRAM IN MORNING AND 300 MILLIGRAM AT NIGHT)
     Dates: start: 20250725
  7. BUDESONIDE\FORMOTEROL\GLYCOPYRRONIUM [Concomitant]
     Active Substance: BUDESONIDE\FORMOTEROL\GLYCOPYRRONIUM
     Indication: Chronic obstructive pulmonary disease
     Dosage: 2 DOSAGE FORM, BID (2 PUFFS, BD)
     Dates: start: 20250328
  8. VENLAFAXINE [Concomitant]
     Active Substance: VENLAFAXINE HYDROCHLORIDE
     Indication: Depressed mood
     Dosage: 300 MILLIGRAM, QD (ONCE DAILY)
     Dates: start: 20241119
  9. LEVOTHYROXINE [Concomitant]
     Active Substance: LEVOTHYROXINE
     Indication: Hypothyroidism
     Dosage: 25 MICROGRAM, QD (ONCE DAILY)
     Dates: start: 20161129
  10. LEVOTHYROXINE [Concomitant]
     Active Substance: LEVOTHYROXINE
     Indication: Hypothyroidism
     Dosage: 50 MICROGRAM, QD (ONCE DAILY)
     Dates: start: 20161129
  11. PRAVASTATIN [Concomitant]
     Active Substance: PRAVASTATIN
     Indication: Hypercholesterolaemia
     Dosage: 200 MILLIGRAM, QD (ONCE DAILY)
     Dates: start: 20161129
  12. METFORMIN [Concomitant]
     Active Substance: METFORMIN HYDROCHLORIDE
     Indication: Type 2 diabetes mellitus
     Dosage: 1 GRAM, BID, (TWICE DIALY)
     Dates: start: 20230125
  13. EPILIM [Concomitant]
     Active Substance: VALPROATE SODIUM
     Indication: Seizure
     Dosage: 1000 MILLIGRAM, BID (TWICE DAILY)
     Dates: start: 20230515
  14. EPILIM [Concomitant]
     Active Substance: VALPROATE SODIUM
     Indication: Affective disorder
  15. EPILIM [Concomitant]
     Active Substance: VALPROATE SODIUM
     Indication: Seizure
     Dosage: 200 MILLIGRAM, BID (ONCE DAILY)
     Dates: start: 20230515
  16. EPILIM [Concomitant]
     Active Substance: VALPROATE SODIUM
     Indication: Affective disorder
  17. SENNA [Concomitant]
     Active Substance: SENNOSIDES
     Indication: Constipation
     Dosage: 7.5 MILLIGRAM, QD (ONCE DAILY)
     Dates: start: 20200716
  18. ESTRADIOL [Concomitant]
     Active Substance: ESTRADIOL
     Indication: Menopause
     Dosage: UNK, QD (2 PUMPS ONCE DAILY)
     Dates: start: 20220310
  19. PRUCALOPRIDE [Concomitant]
     Active Substance: PRUCALOPRIDE
     Indication: Constipation
     Dosage: 2 MILLIGRAM, QD (ONCE DAILY)
     Dates: start: 20230129
  20. LACTULOSE [Concomitant]
     Active Substance: LACTULOSE
     Indication: Constipation
     Dosage: 10 MILLILITER, TID (THREE TIMES DAILY)
     Dates: start: 20250117
  21. LACTULOSE [Concomitant]
     Active Substance: LACTULOSE
  22. RIFAXIMIN [Concomitant]
     Active Substance: RIFAXIMIN
     Indication: Hepatic cirrhosis
     Dosage: 550 MILLIGRAM, BID (TWICE DAILY)
     Dates: start: 20230216
  23. PANTOPRAZOLE [Concomitant]
     Active Substance: PANTOPRAZOLE
     Indication: Dyspepsia
     Dosage: 40 MILLIGRAM, QD (ONCE DAILY)
     Dates: start: 20220806
  24. VIMPAT [Concomitant]
     Active Substance: LACOSAMIDE
     Indication: Seizure
     Dosage: 50 MILLIGRAM, BID (TWICE DAILY)
     Dates: start: 20240130
  25. VIMPAT [Concomitant]
     Active Substance: LACOSAMIDE
     Indication: Seizure
     Dosage: 200 MILLIGRAM, BID (TWICE DAILY)
     Dates: start: 20240130
  26. ASPIRIN [Concomitant]
     Active Substance: ASPIRIN
     Indication: Cardiovascular disorder
     Dosage: 75 MILLIGRAM, QD (ONCE DAILY)
     Dates: start: 20240717
  27. JARDIANCE [Concomitant]
     Active Substance: EMPAGLIFLOZIN
     Indication: Type 2 diabetes mellitus
     Dosage: 10 MILLIGRAM, QD (ONCE DAILY)
     Dates: start: 20240502
  28. PIOGLITAZONE [Concomitant]
     Active Substance: PIOGLITAZONE
     Indication: Type 2 diabetes mellitus
     Dosage: 30 MILLIGRAM, QD (ONCE DAILY)
     Dates: start: 20240502
  29. LINAGLIPTIN [Concomitant]
     Active Substance: LINAGLIPTIN
     Indication: Type 2 diabetes mellitus
     Dosage: 30 MILLIGRAM, QD (ONCE DAILY)
     Dates: start: 20240502
  30. ZONEGRAN [Concomitant]
     Active Substance: ZONISAMIDE
     Indication: Seizure
     Dosage: 200 MILLIGRAM, QD (ONCE DAILY)
     Dates: start: 20250221
  31. ZONEGRAN [Concomitant]
     Active Substance: ZONISAMIDE
     Indication: Tremor
  32. CALCIUM CARBONATE [Concomitant]
     Active Substance: CALCIUM CARBONATE
     Indication: Vitamin supplementation
     Dosage: UNK, QD (1 GRAM/800IU, OD)
     Dates: start: 20250328
  33. POLYETHYLENE GLYCOL 3350\POTASSIUM CHLORIDE\SODIUM BICARBONATE\SODIUM [Concomitant]
     Active Substance: POLYETHYLENE GLYCOL 3350\POTASSIUM CHLORIDE\SODIUM BICARBONATE\SODIUM CHLORIDE
     Indication: Constipation
     Dosage: UNK, BID (1 SACHET BD)
     Dates: start: 20250411
  34. ATROVENT [Concomitant]
     Active Substance: IPRATROPIUM BROMIDE
     Indication: Chronic obstructive pulmonary disease
     Dosage: 500 MICROGRAM, BID (NEBULIZER, 1X 500MCG NEBULE)
     Dates: start: 20250619
  35. MACROBID [Concomitant]
     Active Substance: NITROFURANTOIN\NITROFURANTOIN MONOHYDRATE
     Indication: Urinary tract infection
     Dosage: 100 MILLIGRAM, BID (TWICE DAILY)
     Dates: start: 20250701, end: 20250708
  36. HUMALOG [Concomitant]
     Active Substance: INSULIN LISPRO
     Indication: Type 2 diabetes mellitus
  37. COMBIVENT [Concomitant]
     Active Substance: ALBUTEROL SULFATE\IPRATROPIUM BROMIDE
     Indication: Chronic obstructive pulmonary disease
  38. COMBIVENT [Concomitant]
     Active Substance: ALBUTEROL SULFATE\IPRATROPIUM BROMIDE
  39. COMBIVENT [Concomitant]
     Active Substance: ALBUTEROL SULFATE\IPRATROPIUM BROMIDE
  40. COMBIVENT [Concomitant]
     Active Substance: ALBUTEROL SULFATE\IPRATROPIUM BROMIDE
  41. CYCLIZINE [Concomitant]
     Active Substance: CYCLIZINE
     Indication: Nausea
  42. CYCLIZINE [Concomitant]
     Active Substance: CYCLIZINE
  43. PULMICORT TURBUHALER [Concomitant]
     Active Substance: BUDESONIDE
     Indication: Chronic obstructive pulmonary disease
  44. ACETAMINOPHEN [Concomitant]
     Active Substance: ACETAMINOPHEN
     Indication: Pain
  45. ZOPICLONE [Concomitant]
     Active Substance: ZOPICLONE
     Indication: Insomnia
  46. VENTOLIN [Concomitant]
     Active Substance: ALBUTEROL SULFATE
  47. GAVISCON [Concomitant]
     Active Substance: ALUMINUM HYDROXIDE\MAGNESIUM CARBONATE
  48. VAGIFEM [Concomitant]
     Active Substance: ESTRADIOL
  49. MOVICOL [Concomitant]
     Active Substance: POLYETHYLENE GLYCOL 3350\POTASSIUM CHLORIDE\SODIUM BICARBONATE\SODIUM CHLORIDE
  50. SENOKOT [Concomitant]
     Active Substance: SENNOSIDES
  51. IBUPROFEN [Concomitant]
     Active Substance: IBUPROFEN
  52. Microlax [Concomitant]
  53. PHENERGAN [Concomitant]
     Active Substance: PROMETHAZINE HYDROCHLORIDE
  54. ZOPICLONE [Concomitant]
     Active Substance: ZOPICLONE
  55. QUETIAPINE [Concomitant]
     Active Substance: QUETIAPINE
  56. Picolax [Concomitant]
     Indication: Constipation
     Dosage: 1 DOSAGE FORM, QD (WHEN CONSTIPATED 5 DAYS)
  57. IPRATROPIUM [Concomitant]
     Active Substance: IPRATROPIUM
  58. BUDESONIDE [Concomitant]
     Active Substance: BUDESONIDE

REACTIONS (14)
  - Seizure [Recovered/Resolved]
  - Accidental overdose [Recovering/Resolving]
  - Peripheral swelling [Unknown]
  - Schizophrenia [Unknown]
  - Skin discolouration [Unknown]
  - Pneumonia [Unknown]
  - Urinary tract infection [Unknown]
  - Lower respiratory tract infection [Unknown]
  - Hospitalisation [Unknown]
  - Sedation complication [Unknown]
  - Fall [Unknown]
  - Hypertension [Unknown]
  - Confusional state [Unknown]
  - Haematocrit decreased [Unknown]

NARRATIVE: CASE EVENT DATE: 20250702
